FAERS Safety Report 6012514-1 (Version None)
Quarter: 2008Q4

REPORT INFORMATION
  Report Type: 
  Country: None (occurrence: None)
  Receive Date: 20081218
  Receipt Date: 20081215
  Transmission Date: 20090506
  Serious: Yes (Other)
  Sender: FDA-Public Use
  Company Number: AU-ROXANE LABORATORIES, INC.-2008-RO-00420RO

PATIENT
  Age: 71 Year
  Sex: Male

DRUGS (4)
  1. MERCAPTOPURINE [Suspect]
     Indication: DIARRHOEA
     Dosage: 150MG
  2. BROAD SPECTRUM ANTIBIOTIC [Concomitant]
     Indication: PANCYTOPENIA
  3. ACYCLOVIR [Concomitant]
     Indication: HERPES SIMPLEX
  4. NEUPOGEN [Concomitant]
     Indication: BONE MARROW FAILURE

REACTIONS (2)
  - BONE MARROW FAILURE [None]
  - HERPES SIMPLEX [None]
